FAERS Safety Report 16182697 (Version 3)
Quarter: 2019Q3

REPORT INFORMATION
  Report Type: Spontaneous
  Country: JP (occurrence: JP)
  Receive Date: 20190411
  Receipt Date: 20190705
  Transmission Date: 20191004
  Serious: Yes (Death, Life-Threatening, Hospitalization, Other)
  Sender: FDA-Public Use
  Company Number: JP-009507513-1903JPN002721J

PATIENT
  Age: 77 Year
  Sex: Male
  Weight: 82 kg

DRUGS (2)
  1. KEYTRUDA [Suspect]
     Active Substance: PEMBROLIZUMAB
     Indication: NON-SMALL CELL LUNG CANCER
     Dosage: 200 MILLIGRAM, Q3W
     Route: 041
     Dates: start: 20190110, end: 20190131
  2. KEYTRUDA [Suspect]
     Active Substance: PEMBROLIZUMAB
     Dosage: 200 MILLIGRAM, Q3W
     Route: 041
     Dates: start: 20190331, end: 20190331

REACTIONS (5)
  - Blood albumin decreased [Not Recovered/Not Resolved]
  - Malignant neoplasm progression [Fatal]
  - Liver disorder [Not Recovered/Not Resolved]
  - Platelet count decreased [Not Recovered/Not Resolved]
  - Hepatic atrophy [Unknown]

NARRATIVE: CASE EVENT DATE: 2019
